FAERS Safety Report 10501432 (Version 1)
Quarter: 2014Q4

REPORT INFORMATION
  Report Type: Spontaneous
  Country: US (occurrence: None)
  Receive Date: 20141006
  Receipt Date: 20141006
  Transmission Date: 20150528
  Serious: No
  Sender: FDA-Public Use
  Company Number: None

PATIENT
  Age: 43 Year
  Sex: Female
  Weight: 63.5 kg

DRUGS (1)
  1. TAMSULOSIN [Suspect]
     Active Substance: TAMSULOSIN
     Indication: NEPHROLITHIASIS
     Dosage: TAMSULOSIN ONCE DAILY TAKEN BY MOUTH
     Route: 048
     Dates: start: 20141002, end: 20141003

REACTIONS (2)
  - Restlessness [None]
  - Hallucination, visual [None]

NARRATIVE: CASE EVENT DATE: 20141001
